FAERS Safety Report 7649226-4 (Version None)
Quarter: 2011Q3

REPORT INFORMATION
  Report Type: 
  Country: None (occurrence: None)
  Receive Date: 20110726
  Receipt Date: 20110714
  Transmission Date: 20111222
  Serious: Yes (Death)
  Sender: FDA-Public Use
  Company Number: 872981

PATIENT
  Age: 87 Year
  Sex: Male
  Weight: 87.73 kg

DRUGS (16)
  1. REGULAR INSULIN [Concomitant]
  2. CILOSTAZOL [Concomitant]
  3. SIMVASTATIN [Concomitant]
  4. HEPARIN SODIUM INJECTION [Concomitant]
  5. VANCOMYCIN HCL [Suspect]
     Indication: OSTEOMYELITIS
     Dosage: 1 G, Q12H, INTRAVENOUS (NOT OTHERWISE SPECIFED)
     Route: 042
     Dates: start: 20110216, end: 20110221
  6. ROSIGLITAZONE [Concomitant]
  7. OXYCODONE HCL [Concomitant]
  8. VANCOMYCIN HYDROCHLORIDE [Suspect]
     Indication: OSTEOMYELITIS
     Dosage: 1 G, Q12H, INTRAVENOUS (NOT OTHERWISE SPECIFIED)
     Route: 042
     Dates: start: 20110216, end: 20110221
  9. QUETIAPINE [Concomitant]
  10. SERTRALINE HYDROCHLORIDE [Concomitant]
  11. (GLIPIZIDE) [Concomitant]
  12. PANTOPRAZOLE SODIUM [Concomitant]
  13. VANCOMYCIN HYDROCHLORIDE [Suspect]
     Indication: OSTEOMYELITIS
     Dosage: 1 G, Q12H, INTRAVENOUS (NOT OTHERWISE SPECIFIED)
     Route: 042
     Dates: start: 20110216, end: 20110221
  14. VANCOMYCIN HCL [Suspect]
     Indication: OSTEOMYELITIS
     Dosage: 1 G, Q12HM, INTRAVENOUS (NOT OTHERWISE SPECIFIED)
     Route: 042
     Dates: start: 20110216, end: 20110221
  15. LISINOPRIL [Concomitant]
  16. TEMAZEPAM [Concomitant]

REACTIONS (1)
  - NEPHROPATHY TOXIC [None]
